FAERS Safety Report 21054748 (Version 2)
Quarter: 2024Q1

REPORT INFORMATION
  Report Type: Spontaneous
  Country: US (occurrence: US)
  Receive Date: 20220707
  Receipt Date: 20240131
  Transmission Date: 20240410
  Serious: Yes (Other)
  Sender: FDA-Public Use
  Company Number: US-PFIZER INC-202200935253

PATIENT
  Age: 61 Year
  Sex: Female
  Weight: 83.46 kg

DRUGS (3)
  1. XELJANZ [Suspect]
     Active Substance: TOFACITINIB CITRATE
     Indication: Rheumatoid arthritis
     Dosage: 5 MG, 2X/DAY
     Route: 048
     Dates: start: 2016
  2. XELJANZ [Suspect]
     Active Substance: TOFACITINIB CITRATE
     Dosage: TAKING 1 A DAY
  3. XELJANZ [Suspect]
     Active Substance: TOFACITINIB CITRATE
     Dosage: TAKING ONE EVERY OTHER DAY

REACTIONS (5)
  - Gastric ulcer [Unknown]
  - Anaemia [Unknown]
  - Ulcer haemorrhage [Unknown]
  - Hiatus hernia [Unknown]
  - Intentional product misuse [Unknown]
